FAERS Safety Report 6701227-6 (Version None)
Quarter: 2010Q2

REPORT INFORMATION
  Report Type: 
  Country: None (occurrence: None)
  Receive Date: 20100427
  Receipt Date: 20100419
  Transmission Date: 20101027
  Serious: Yes (Other)
  Sender: FDA-Public Use
  Company Number: 2010BM000063

PATIENT
  Age: 8 Year
  Sex: Male
  Weight: 18.5 kg

DRUGS (3)
  1. NAGLAZYME [Suspect]
     Indication: MUCOPOLYSACCHARIDOSIS VI
     Dosage: 0.8 MG/KG;QW; IVDRP; 0.85 MG/KG;QW; IVDRP
     Route: 041
     Dates: start: 20071022
  2. NAGLAZYME [Suspect]
     Indication: MUCOPOLYSACCHARIDOSIS VI
     Dosage: 0.8 MG/KG;QW; IVDRP; 0.85 MG/KG;QW; IVDRP
     Route: 041
     Dates: start: 20100301
  3. PREDNISOLONE [Concomitant]

REACTIONS (1)
  - ANGIOEDEMA [None]
